FAERS Safety Report 9050021 (Version 1)
Quarter: 2013Q1

REPORT INFORMATION
  Report Type: Spontaneous
  Country: US (occurrence: US)
  Receive Date: 20130205
  Receipt Date: 20130205
  Transmission Date: 20140127
  Serious: No
  Sender: FDA-Public Use
  Company Number: US-GLAXOSMITHKLINE-A0983425A

PATIENT
  Age: 79 Year
  Sex: Female

DRUGS (5)
  1. FONDAPARINUX SODIUM [Suspect]
     Indication: THROMBOSIS
     Dosage: 10MG IN THE MORNING
     Route: 058
     Dates: start: 2010
  2. PRAVASTATIN [Concomitant]
     Dosage: 40MG PER DAY
     Route: 048
  3. FOLIC ACID [Concomitant]
     Dosage: 1MG UNKNOWN
     Route: 065
  4. VITAMIN B12 [Concomitant]
  5. VITAMIN B6 [Concomitant]

REACTIONS (1)
  - Dizziness [Not Recovered/Not Resolved]
